FAERS Safety Report 14407673 (Version 9)
Quarter: 2019Q1

REPORT INFORMATION
  Report Type: Spontaneous
  Country: US (occurrence: US)
  Receive Date: 20180118
  Receipt Date: 20190321
  Transmission Date: 20190417
  Serious: Yes (Hospitalization)
  Sender: FDA-Public Use
  Company Number: US-ACTELION-A-NJ2018-165830

PATIENT
  Age: 76 Year
  Sex: Female

DRUGS (8)
  1. MIDODRINE [Concomitant]
     Active Substance: MIDODRINE
  2. FLUDROCORTISONE [Concomitant]
     Active Substance: FLUDROCORTISONE
  3. OPSUMIT [Suspect]
     Active Substance: MACITENTAN
     Indication: PULMONARY ARTERIAL HYPERTENSION
     Dosage: 10 MG, QD
     Route: 048
     Dates: start: 20171227
  4. WARFARIN [Concomitant]
     Active Substance: WARFARIN
  5. ATORVASTATIN [Concomitant]
     Active Substance: ATORVASTATIN
  6. BREO ELLIPTA [Concomitant]
     Active Substance: FLUTICASONE FUROATE\VILANTEROL TRIFENATATE
  7. MUCINEX [Concomitant]
     Active Substance: GUAIFENESIN
  8. OPSUMIT [Suspect]
     Active Substance: MACITENTAN
     Dosage: UNK
     Route: 048
     Dates: start: 20171208, end: 20171209

REACTIONS (10)
  - Blood glucose decreased [Unknown]
  - Therapy non-responder [Not Recovered/Not Resolved]
  - Nasal congestion [Not Recovered/Not Resolved]
  - Dialysis [Unknown]
  - Respiratory tract infection viral [Unknown]
  - Dyspnoea [Unknown]
  - Nasopharyngitis [Not Recovered/Not Resolved]
  - Respiratory disorder [Unknown]
  - Renal disorder [Unknown]
  - Eye infection [Unknown]

NARRATIVE: CASE EVENT DATE: 20171229
